FAERS Safety Report 20854821 (Version 1)
Quarter: 2022Q2

REPORT INFORMATION
  Report Type: Spontaneous
  Country: US (occurrence: US)
  Receive Date: 20220520
  Receipt Date: 20220520
  Transmission Date: 20220720
  Serious: Yes (Other)
  Sender: FDA-Public Use
  Company Number: US-BOIRON-202200286

PATIENT
  Age: 78 Year
  Sex: Male

DRUGS (8)
  1. UNSPECIFIED INGREDIENT [Suspect]
     Active Substance: UNSPECIFIED INGREDIENT
     Indication: Oropharyngeal pain
     Dosage: 2 TABLETS, 3X/DAY
     Dates: start: 20220430, end: 20220503
  2. HOMEOPATHICS [Suspect]
     Active Substance: HOMEOPATHICS
     Indication: Upper-airway cough syndrome
  3. HOMEOPATHICS [Suspect]
     Active Substance: HOMEOPATHICS
     Indication: Dysphonia
  4. TAMSULOSIN [Concomitant]
     Active Substance: TAMSULOSIN
  5. ESOMEPRAZOLE [Concomitant]
     Active Substance: ESOMEPRAZOLE
  6. HYDROCHLOROTHIAZIDE [Concomitant]
     Active Substance: HYDROCHLOROTHIAZIDE
  7. FINASTERIDE [Concomitant]
     Active Substance: FINASTERIDE
  8. GLIPIZIDE [Concomitant]
     Active Substance: GLIPIZIDE

REACTIONS (4)
  - Delirium [Recovered/Resolved]
  - Feeling abnormal [Recovered/Resolved]
  - Abdominal discomfort [Recovered/Resolved]
  - Road traffic accident [Recovered/Resolved]

NARRATIVE: CASE EVENT DATE: 20220501
